FAERS Safety Report 24195564 (Version 1)
Quarter: 2024Q3

REPORT INFORMATION
  Report Type: Spontaneous
  Country: US (occurrence: None)
  Receive Date: 20240809
  Receipt Date: 20240809
  Transmission Date: 20241017
  Serious: Yes (Other)
  Sender: Public
  Company Number: None

PATIENT
  Age: 13 Month
  Sex: Male
  Weight: 9.45 kg

DRUGS (3)
  1. PREDNISOLONE [Suspect]
     Active Substance: PREDNISOLONE
     Indication: Rash
     Dosage: FREQUENCY : TWICE A DAY;?
     Route: 048
     Dates: start: 20240809, end: 20240809
  2. Triaminoline [Concomitant]
  3. Gerber infants Multivitamin and probiotics [Concomitant]

REACTIONS (2)
  - Urticaria [None]
  - Swelling face [None]

NARRATIVE: CASE EVENT DATE: 20240809
